FAERS Safety Report 22028916 (Version 5)
Quarter: 2023Q2

REPORT INFORMATION
  Report Type: Report from Study
  Country: KR (occurrence: None)
  Receive Date: 20230223
  Receipt Date: 20230619
  Transmission Date: 20230721
  Serious: Yes (Hospitalization)
  Sender: FDA-Public Use
  Company Number: KR-Eisai Medical Research-EC-2023-134583

PATIENT
  Age: 49 Year
  Sex: Male
  Weight: 63.1 kg

DRUGS (14)
  1. LENVATINIB [Suspect]
     Active Substance: LENVATINIB
     Indication: Squamous cell carcinoma of head and neck
     Dosage: STARTING DOSE 20 MILLIGRAM, FLUCTUATED DOSE
     Route: 048
     Dates: start: 20220428, end: 20230215
  2. LENVATINIB [Suspect]
     Active Substance: LENVATINIB
     Route: 048
     Dates: start: 20230216, end: 20230509
  3. PEMBROLIZUMAB [Suspect]
     Active Substance: PEMBROLIZUMAB
     Indication: Squamous cell carcinoma of head and neck
     Route: 041
     Dates: start: 20220428, end: 20230126
  4. PEMBROLIZUMAB [Suspect]
     Active Substance: PEMBROLIZUMAB
     Route: 041
     Dates: start: 20230216, end: 20230420
  5. BENZYDAMINE HYDROCHLORIDE [Concomitant]
     Active Substance: BENZYDAMINE HYDROCHLORIDE
     Dates: start: 20210807
  6. CHLORHEXIDINE [Concomitant]
     Active Substance: CHLORHEXIDINE
     Dates: start: 20220407
  7. GEMIGLIPTIN TARTRATE [Concomitant]
     Dates: start: 20220416
  8. FENTANYL CITRATE [Concomitant]
     Active Substance: FENTANYL CITRATE
     Dates: start: 20220721
  9. ENCOVER [Concomitant]
     Dates: start: 20220721
  10. FENTANYL [Concomitant]
     Active Substance: FENTANYL
     Dates: start: 20220721
  11. HYDROMORPHONE [Concomitant]
     Active Substance: HYDROMORPHONE
     Dates: start: 20220804
  12. AMLODIPINE [Concomitant]
     Active Substance: AMLODIPINE BESYLATE
     Dates: start: 20221027
  13. MOXIFLOXACIN [Concomitant]
     Active Substance: MOXIFLOXACIN
     Dates: start: 20230105
  14. DICLOFENAC [Concomitant]
     Active Substance: DICLOFENAC
     Dates: start: 20230105

REACTIONS (1)
  - Decreased appetite [Recovering/Resolving]

NARRATIVE: CASE EVENT DATE: 20230214
